FAERS Safety Report 13070017 (Version 3)
Quarter: 2017Q1

REPORT INFORMATION
  Report Type: Spontaneous
  Country: US (occurrence: US)
  Receive Date: 20161228
  Receipt Date: 20170316
  Transmission Date: 20170428
  Serious: Yes (Other)
  Sender: FDA-Public Use
  Company Number: US-009507513-1612USA006551

PATIENT
  Age: 25 Year
  Sex: Female
  Weight: 149.66 kg

DRUGS (1)
  1. NEXPLANON [Suspect]
     Active Substance: ETONOGESTREL
     Indication: CONTRACEPTION
     Dosage: 1 SINGLE ROD FOR EVERY 3 YEARS
     Route: 059
     Dates: start: 201312, end: 20170117

REACTIONS (8)
  - Complication of device removal [Not Recovered/Not Resolved]
  - Device breakage [Recovered/Resolved]
  - Device kink [Not Recovered/Not Resolved]
  - Complication associated with device [Recovered/Resolved]
  - General anaesthesia [Unknown]
  - Migration of implanted drug [Not Recovered/Not Resolved]
  - Device difficult to use [Recovered/Resolved]
  - No adverse event [Unknown]

NARRATIVE: CASE EVENT DATE: 2016
